FAERS Safety Report 11459501 (Version 1)
Quarter: 2015Q3

REPORT INFORMATION
  Report Type: Spontaneous
  Country: US (occurrence: US)
  Receive Date: 20150904
  Receipt Date: 20150904
  Transmission Date: 20151125
  Serious: No
  Sender: FDA-Public Use
  Company Number: US-BAYER-2015-408369

PATIENT
  Age: 3 Year
  Sex: Female
  Weight: 10.43 kg

DRUGS (1)
  1. MIRALAX [Suspect]
     Active Substance: POLYETHYLENE GLYCOL 3350
     Indication: CONSTIPATION
     Dosage: 1 DOSE, 3 TO 4 TIMES A WEEK
     Route: 048
     Dates: start: 201412

REACTIONS (1)
  - Drug administered to patient of inappropriate age [None]

NARRATIVE: CASE EVENT DATE: 201412
